FAERS Safety Report 6256680-1 (Version None)
Quarter: 2009Q3

REPORT INFORMATION
  Report Type: 
  Country: None (occurrence: None)
  Receive Date: 20090706
  Receipt Date: 20090625
  Transmission Date: 20100115
  Serious: Yes (Hospitalization, Disabling, Other)
  Sender: FDA-Public Use
  Company Number: BR-BAYER-200916692LA

PATIENT
  Age: 25 Year
  Sex: Female

DRUGS (2)
  1. BETAFERON [Suspect]
     Indication: MULTIPLE SCLEROSIS
     Dosage: TOTAL DAILY DOSE: 8 MIU
     Route: 058
     Dates: start: 20090116
  2. NIMESULIDE [Concomitant]
     Indication: HEADACHE
     Dosage: 1 TABLET TWICE A DAY AS NEEDED
     Route: 048
     Dates: start: 20090301

REACTIONS (13)
  - ANAEMIA [None]
  - BLINDNESS UNILATERAL [None]
  - BLOOD PRESSURE INCREASED [None]
  - BUNDLE BRANCH BLOCK RIGHT [None]
  - CHEST PAIN [None]
  - DYSPNOEA [None]
  - HYPOAESTHESIA [None]
  - INJECTION SITE HAEMATOMA [None]
  - INJECTION SITE RASH [None]
  - MULTIPLE SCLEROSIS RELAPSE [None]
  - OESOPHAGEAL SPASM [None]
  - PAIN [None]
  - PYREXIA [None]
